FAERS Safety Report 10096306 (Version 1)
Quarter: 2014Q2

REPORT INFORMATION
  Report Type: Spontaneous
  Country: US (occurrence: None)
  Receive Date: 20140410
  Receipt Date: 20140410
  Transmission Date: 20141212
  Serious: Yes (Hospitalization)
  Sender: FDA-Public Use
  Company Number: 2013-002150

PATIENT
  Age: 18 Year
  Sex: Female

DRUGS (1)
  1. LOESTRIN 24 FE (NORETHINDRONE ACETATE, ETHINYLESTRADIOL, FERROUS FUMARATE) TABLET [Suspect]
     Indication: CONTRACEPTION
     Route: 048
     Dates: end: 201209

REACTIONS (4)
  - Pain in extremity [None]
  - Dyspnoea [None]
  - Malaise [None]
  - Pulmonary embolism [None]
